FAERS Safety Report 10257138 (Version 1)
Quarter: 2014Q2

REPORT INFORMATION
  Report Type: Spontaneous
  Country: IT (occurrence: IT)
  Receive Date: 20140625
  Receipt Date: 20140625
  Transmission Date: 20141212
  Serious: Yes (Hospitalization)
  Sender: FDA-Public Use
  Company Number: IT-DRREDDYS-GER/ITL/14/0041171

PATIENT
  Age: 35 Year
  Sex: Male

DRUGS (1)
  1. LEVOFLOXACIN [Suspect]
     Indication: BRONCHITIS
     Route: 048
     Dates: start: 20140108, end: 20140108

REACTIONS (3)
  - Dyspnoea [Recovered/Resolved]
  - Pruritus [Recovered/Resolved]
  - Generalised erythema [Recovered/Resolved]
